APPROVED DRUG PRODUCT: U-CORT
Active Ingredient: HYDROCORTISONE ACETATE
Strength: 1%
Dosage Form/Route: CREAM;TOPICAL
Application: A089472 | Product #001
Applicant: SUN PHARMA CANADA INC
Approved: Jun 13, 1988 | RLD: No | RS: No | Type: DISCN